FAERS Safety Report 25398774 (Version 3)
Quarter: 2025Q2

REPORT INFORMATION
  Report Type: Spontaneous
  Country: US (occurrence: US)
  Receive Date: 20250604
  Receipt Date: 20250630
  Transmission Date: 20250717
  Serious: Yes (Hospitalization)
  Sender: BRISTOL-MYERS SQUIBB COMPANY
  Company Number: US-BRISTOL-MYERS SQUIBB COMPANY-2025-078824

PATIENT
  Age: 84 Year
  Sex: Female

DRUGS (1)
  1. POMALYST [Suspect]
     Active Substance: POMALIDOMIDE
     Indication: Plasma cell myeloma
     Dosage: TAKE 1 CAPSULE BY MOUTH EVERY DAY ON DAYS 1-21 FOLLOWED BY 7 DAYS OFF OF EACH 28 DAY CYCLE
     Route: 048

REACTIONS (6)
  - Infection [Recovering/Resolving]
  - Bone pain [Unknown]
  - Nausea [Unknown]
  - Pyrexia [Recovering/Resolving]
  - Chills [Recovering/Resolving]
  - Oedema peripheral [Recovering/Resolving]
